FAERS Safety Report 12341358 (Version 1)
Quarter: 2016Q2

REPORT INFORMATION
  Report Type: Report from Study
  Country: US (occurrence: US)
  Receive Date: 20160506
  Receipt Date: 20160506
  Transmission Date: 20160815
  Serious: Yes (Death, Hospitalization, Other)
  Sender: FDA-Public Use
  Company Number: US-GILEAD-2016-0212238

PATIENT
  Age: 78 Year
  Sex: Male

DRUGS (11)
  1. AMBRISENTAN [Suspect]
     Active Substance: AMBRISENTAN
     Indication: PULMONARY HYPERTENSION
     Dosage: 10 MG, QD
     Route: 065
     Dates: start: 20140218, end: 20160421
  2. WARFARIN [Concomitant]
     Active Substance: WARFARIN
  3. METOPROLOL. [Concomitant]
     Active Substance: METOPROLOL
  4. NOVOLOG [Concomitant]
     Active Substance: INSULIN ASPART
  5. ATORVASTATIN [Concomitant]
     Active Substance: ATORVASTATIN
  6. LEVEMIR [Concomitant]
     Active Substance: INSULIN DETEMIR
  7. NEXIUM [Concomitant]
     Active Substance: ESOMEPRAZOLE MAGNESIUM
  8. ASPIRIN                            /00002701/ [Concomitant]
     Active Substance: ASPIRIN
  9. NITROGLYCERIN. [Concomitant]
     Active Substance: NITROGLYCERIN
  10. LEVOTHYROXINE. [Concomitant]
     Active Substance: LEVOTHYROXINE
  11. OMEGA-3                            /01866101/ [Concomitant]
     Active Substance: OMEGA-3 FATTY ACIDS

REACTIONS (3)
  - Chest pain [Not Recovered/Not Resolved]
  - Dyspnoea [Not Recovered/Not Resolved]
  - Death [Fatal]

NARRATIVE: CASE EVENT DATE: 20160421
